FAERS Safety Report 4527905-5 (Version None)
Quarter: 2004Q4

REPORT INFORMATION
  Report Type: 
  Country: None (occurrence: None)
  Receive Date: 20041123
  Receipt Date: 20040816
  Transmission Date: 20050328
  Serious: Yes (Other)
  Sender: FDA-Public Use
  Company Number: US-JNJFOC-20040706005

PATIENT
  Age: 23 Year
  Sex: Male
  Weight: 84.8226 kg

DRUGS (11)
  1. RISPERDAL [Suspect]
     Indication: SCHIZOPHRENIA
     Dosage: 25 MG, 1 IN 2 WEEK, INTRA-MUSCULAR
     Route: 030
  2. RISPERDAL [Concomitant]
  3. SEROQUEL [Concomitant]
  4. TRAZODONE HCL [Concomitant]
  5. EFFEXOR XR [Concomitant]
  6. VISTARIL [Concomitant]
  7. MILK OF MAGNESIA (MAGNESIUM HYDROXIDE) [Concomitant]
  8. SYNTHROID [Concomitant]
  9. FOLIC ACID [Concomitant]
  10. ZYPREXA [Concomitant]
  11. THIAMINE (THIAMINE) [Concomitant]

REACTIONS (1)
  - ANAPHYLACTIC REACTION [None]
